FAERS Safety Report 11399965 (Version 1)
Quarter: 2015Q3

REPORT INFORMATION
  Report Type: Spontaneous
  Country: US (occurrence: US)
  Receive Date: 20150820
  Receipt Date: 20150820
  Transmission Date: 20151125
  Serious: No
  Sender: FDA-Public Use
  Company Number: US-009507513-1508USA003541

PATIENT
  Age: 18 Year
  Sex: Female
  Weight: 76.19 kg

DRUGS (1)
  1. NEXPLANON [Suspect]
     Active Substance: ETONOGESTREL
     Indication: CONTRACEPTION
     Dosage: 1 IMPLANT/ EVERY 3 YEARS
     Route: 059
     Dates: start: 20150608, end: 20150804

REACTIONS (6)
  - Limb discomfort [Recovered/Resolved]
  - Device expulsion [Recovered/Resolved]
  - Product quality issue [Unknown]
  - Implant site discharge [Recovered/Resolved]
  - Scar [Unknown]
  - Device kink [Recovered/Resolved]

NARRATIVE: CASE EVENT DATE: 2015
